FAERS Safety Report 14172804 (Version 1)
Quarter: 2017Q4

REPORT INFORMATION
  Report Type: Spontaneous
  Country: US (occurrence: US)
  Receive Date: 20171108
  Receipt Date: 20171108
  Transmission Date: 20180321
  Serious: Yes (Other)
  Sender: FDA-Public Use
  Company Number: None

PATIENT
  Age: 33 Year
  Sex: Female
  Weight: 69.75 kg

DRUGS (4)
  1. METHYLPHENIDATE ER [Suspect]
     Active Substance: METHYLPHENIDATE
     Indication: ATTENTION DEFICIT/HYPERACTIVITY DISORDER
     Dosage: ?          QUANTITY:30 TABLET(S);?
     Route: 048
  2. PRINIVIL [Concomitant]
     Active Substance: LISINOPRIL
  3. WOMAN^S MULTI VITAMIN [Concomitant]
  4. CONCERTA [Concomitant]
     Active Substance: METHYLPHENIDATE HYDROCHLORIDE

REACTIONS (5)
  - Abnormal behaviour [None]
  - Therapy non-responder [None]
  - Psychomotor hyperactivity [None]
  - Impulsive behaviour [None]
  - Product substitution issue [None]

NARRATIVE: CASE EVENT DATE: 20171020
